FAERS Safety Report 15120442 (Version 2)
Quarter: 2018Q3

REPORT INFORMATION
  Report Type: Spontaneous
  Country: JP (occurrence: JP)
  Receive Date: 20180709
  Receipt Date: 20180717
  Transmission Date: 20181010
  Serious: Yes (Other)
  Sender: FDA-Public Use
  Company Number: JP-ROCHE-2151610

PATIENT
  Age: 2 Decade
  Sex: Female
  Weight: 40 kg

DRUGS (35)
  1. CELLCEPT [Suspect]
     Active Substance: MYCOPHENOLATE MOFETIL\MYCOPHENOLATE MOFETIL HYDROCHLORIDE
     Indication: NEPHROTIC SYNDROME
     Dosage: MOST RECENT DOSE ON 25/FEB/2016
     Route: 048
     Dates: start: 20160210
  2. CELLCEPT [Suspect]
     Active Substance: MYCOPHENOLATE MOFETIL\MYCOPHENOLATE MOFETIL HYDROCHLORIDE
     Dosage: MOST RECENT DOSE ON 15/MAR/2016
     Route: 048
     Dates: start: 20160226
  3. NEORAL [Concomitant]
     Active Substance: CYCLOSPORINE
     Dosage: DOSE INTERVAL UNCERTAINTY
     Route: 048
     Dates: start: 20160223, end: 20160609
  4. NEORAL [Concomitant]
     Active Substance: CYCLOSPORINE
     Dosage: DOSE INTERVAL UNCERTAINTY
     Route: 048
     Dates: start: 20160715, end: 20160815
  5. CALCIUM POLYSTYRENE SULFONATE [Concomitant]
     Active Substance: CALCIUM POLYSTYRENE SULFONATE
     Dosage: DOSE INTERVAL UNCERTAINTY
     Route: 048
     Dates: start: 20160316, end: 20160322
  6. CELLCEPT [Suspect]
     Active Substance: MYCOPHENOLATE MOFETIL\MYCOPHENOLATE MOFETIL HYDROCHLORIDE
     Dosage: DOSE INTERVAL UNCERTAINTY
     Route: 048
     Dates: start: 20160502
  7. PERSANTIN [Concomitant]
     Active Substance: DIPYRIDAMOLE
     Indication: NEPHROTIC SYNDROME
     Dosage: DOSE INTERVAL UNCERTAINTY
     Route: 048
     Dates: start: 20160215, end: 20160225
  8. AMLODIPINE BESILATE [Concomitant]
     Active Substance: AMLODIPINE BESYLATE
     Dosage: DOSE INTERVAL UNCERTAINTY
     Route: 048
     Dates: start: 20160408, end: 20160502
  9. SOLU?CORTEF [Concomitant]
     Active Substance: HYDROCORTISONE SODIUM SUCCINATE
     Route: 065
     Dates: start: 20160209
  10. TAMIFLU [Suspect]
     Active Substance: OSELTAMIVIR PHOSPHATE
     Indication: ANTIVIRAL PROPHYLAXIS
     Dosage: MOST RECENT DOSE ON 17/MAR/2016
     Route: 048
     Dates: start: 20160312
  11. CELLCEPT [Suspect]
     Active Substance: MYCOPHENOLATE MOFETIL\MYCOPHENOLATE MOFETIL HYDROCHLORIDE
     Dosage: MOST RECENT DOSE ON 01/MAY/2016
     Route: 048
     Dates: start: 20160316
  12. AMBROXOL [Concomitant]
     Active Substance: AMBROXOL
     Route: 065
     Dates: start: 20160223
  13. CARBOCISTEINE [Concomitant]
     Active Substance: CARBOCYSTEINE
     Route: 065
     Dates: start: 20160223
  14. NEORAL [Concomitant]
     Active Substance: CYCLOSPORINE
     Indication: NEPHROTIC SYNDROME
     Dosage: DOSE INTERVAL UNCERTAINTY
     Route: 048
     Dates: start: 20160208, end: 20160222
  15. NEORAL [Concomitant]
     Active Substance: CYCLOSPORINE
     Dosage: DOSE INTERVAL UNCERTAINTY
     Route: 048
     Dates: start: 20160610, end: 20160714
  16. SULFAMETHOXAZOLE/TRIMETHOPRIM [Concomitant]
     Active Substance: SULFAMETHOXAZOLE\TRIMETHOPRIM
     Route: 048
     Dates: start: 2016, end: 20161205
  17. CALCIUM POLYSTYRENE SULFONATE [Concomitant]
     Active Substance: CALCIUM POLYSTYRENE SULFONATE
     Dosage: DOSE INTERVAL UNCERTAINTY
     Route: 048
     Dates: start: 20160210, end: 20160315
  18. AMLODIPINE BESILATE [Concomitant]
     Active Substance: AMLODIPINE BESYLATE
     Dosage: DOSE INTERVAL UNCERTAINTY
     Route: 048
     Dates: start: 20160203, end: 20160407
  19. CARBOCISTEINE [Concomitant]
     Active Substance: CARBOCYSTEINE
     Route: 065
     Dates: start: 20160609
  20. SINGULAIR [Concomitant]
     Active Substance: MONTELUKAST SODIUM
     Route: 065
     Dates: start: 20160623
  21. PERSANTIN [Concomitant]
     Active Substance: DIPYRIDAMOLE
     Dosage: DOSE INTERVAL UNCERTAINTY
     Route: 048
     Dates: start: 20160226, end: 20160407
  22. CALCIUM POLYSTYRENE SULFONATE [Concomitant]
     Active Substance: CALCIUM POLYSTYRENE SULFONATE
     Dosage: DOSE INTERVAL UNCERTAINTY
     Route: 048
     Dates: start: 20160209
  23. CALCIUM POLYSTYRENE SULFONATE [Concomitant]
     Active Substance: CALCIUM POLYSTYRENE SULFONATE
     Dosage: DOSE INTERVAL UNCERTAINTY
     Route: 048
     Dates: start: 20160503, end: 20160609
  24. INTAL [Concomitant]
     Active Substance: CROMOLYN SODIUM
     Route: 065
     Dates: start: 20160209
  25. MEDICON (DEXTROMETHORPHAN HYDROBROMIDE/POTASSIUM CRESOLSULFONATE) [Concomitant]
     Route: 065
     Dates: start: 20160609
  26. FERROMIA [Concomitant]
     Active Substance: SODIUM FERROUS CITRATE
     Route: 065
     Dates: start: 20160905
  27. PREDONINE [Concomitant]
     Active Substance: PREDNISOLONE
     Indication: NEPHROTIC SYNDROME
     Dosage: MAXIMAL DOSE 40MG/DAY, MINIMUM DOSE 10MG/EVERY OTHER DAY FOR THE PRIOD.?DOSE INTERVAL UNCERTAINTY.
     Route: 048
     Dates: start: 20160205, end: 20160513
  28. PERSANTIN [Concomitant]
     Active Substance: DIPYRIDAMOLE
     Dosage: DOSE INTERVAL UNCERTAINTY
     Route: 048
  29. SULFAMETHOXAZOLE/TRIMETHOPRIM [Concomitant]
     Active Substance: SULFAMETHOXAZOLE\TRIMETHOPRIM
     Dosage: DOSE INTERVAL UNCERTAINTY
     Route: 048
     Dates: start: 20160106, end: 2016
  30. CLINDAMYCIN PHOSPHATE. [Concomitant]
     Active Substance: CLINDAMYCIN PHOSPHATE
     Route: 003
     Dates: start: 20160202
  31. HEPARINOID [Concomitant]
     Active Substance: CHONDROITIN SULFATE (BOVINE)
     Dosage: DOSAGE IS UNCERTAIN.
     Route: 003
     Dates: start: 20160202, end: 20160822
  32. MEPTIN [Concomitant]
     Active Substance: PROCATEROL HYDROCHLORIDE
     Route: 065
     Dates: start: 20160623
  33. KLARICID [Concomitant]
     Active Substance: CLARITHROMYCIN
     Route: 065
     Dates: start: 20161006
  34. CALCIUM POLYSTYRENE SULFONATE [Concomitant]
     Active Substance: CALCIUM POLYSTYRENE SULFONATE
     Dosage: DOSE INTERVAL UNCERTAINTY
     Route: 048
     Dates: start: 20160323, end: 20160502
  35. VENETLIN [Concomitant]
     Active Substance: ALBUTEROL SULFATE
     Route: 065
     Dates: start: 20160209

REACTIONS (2)
  - Pneumonia [Recovered/Resolved]
  - Overdose [Unknown]

NARRATIVE: CASE EVENT DATE: 20170314
